FAERS Safety Report 14287647 (Version 1)
Quarter: 2017Q4

REPORT INFORMATION
  Report Type: Report from Study
  Country: DE (occurrence: DE)
  Receive Date: 20171215
  Receipt Date: 20171215
  Transmission Date: 20180321
  Serious: Yes (Other)
  Sender: FDA-Public Use
  Company Number: DE-CIPLA LTD.-2017DE23043

PATIENT

DRUGS (8)
  1. CELECOXIB. [Suspect]
     Active Substance: CELECOXIB
     Indication: NEUROBLASTOMA
     Dosage: 200-400 MG/M2 PER DAY, DAY 1-77 OR 1-78
     Route: 048
  2. ETOPOSIDE. [Suspect]
     Active Substance: ETOPOSIDE
     Indication: NEUROBLASTOMA
     Dosage: 25 MG/M2, PER DAY, DAY 1-21 OR DAY 1-35
     Route: 048
  3. TEMOZOLOMIDE. [Suspect]
     Active Substance: TEMOZOLOMIDE
     Indication: NEUROBLASTOMA
     Dosage: 30-60 MG/M2 PER DAY, DAY 36-77
     Route: 048
  4. VITAMIN D3 [Suspect]
     Active Substance: CHOLECALCIFEROL
     Dosage: 300 KU/M2 PER DAY DAY 1 (CHOLECALCIFEROL)
     Route: 048
  5. FENOFIBRATE. [Suspect]
     Active Substance: FENOFIBRATE
     Indication: NEUROBLASTOMA
     Dosage: 100 MG/M2, PER DAY, DAY 1 TO 78
     Route: 048
  6. BEVACIZUMAB. [Suspect]
     Active Substance: BEVACIZUMAB
     Indication: NEUROBLASTOMA
     Dosage: 10 MG/KG, EVERY 14 DAYS
     Route: 042
  7. ISOTRETINOIN. [Suspect]
     Active Substance: ISOTRETINOIN
     Indication: NEUROBLASTOMA
     Dosage: 100 MG/M2, PER DAY, DAY 1 TO 14, 29 TO 42, 57 TO 70
     Route: 065
  8. VITAMIN D3 [Suspect]
     Active Substance: CHOLECALCIFEROL
     Indication: NEUROBLASTOMA
     Dosage: 1500 U/M2 PER DAY, DAY 1 TO 78 (VITAMIN D3)
     Route: 048

REACTIONS (1)
  - Disease progression [Unknown]
